FAERS Safety Report 16622374 (Version 4)
Quarter: 2019Q4

REPORT INFORMATION
  Report Type: Spontaneous
  Country: JP (occurrence: JP)
  Receive Date: 20190724
  Receipt Date: 20191031
  Transmission Date: 20200122
  Serious: Yes (Hospitalization, Other)
  Sender: FDA-Public Use
  Company Number: JP-009507513-1907JPN000612J

PATIENT
  Age: 77 Year
  Sex: Male
  Weight: 62 kg

DRUGS (15)
  1. AVAPRO [Concomitant]
     Active Substance: IRBESARTAN
     Indication: HYPERTENSION
     Dosage: 1 DOSAGE FORM, QD
     Route: 048
  2. KEYTRUDA [Suspect]
     Active Substance: PEMBROLIZUMAB
     Dosage: 200 MILLIGRAM, Q3W
     Route: 041
     Dates: start: 20190614, end: 20190614
  3. CARBOPLATIN. [Suspect]
     Active Substance: CARBOPLATIN
     Indication: NON-SMALL CELL LUNG CANCER
     Dosage: 538.5MG/BODY, Q3W
     Route: 041
     Dates: start: 20190315, end: 20190522
  4. DEXART [Concomitant]
     Active Substance: DEXAMETHASONE SODIUM PHOSPHATE
     Indication: NAUSEA
     Dosage: 6.6 MILLIGRAM, QD
     Route: 042
     Dates: start: 20190315, end: 20190607
  5. TAMSULOSIN HYDROCHLORIDE. [Concomitant]
     Active Substance: TAMSULOSIN HYDROCHLORIDE
     Indication: BENIGN PROSTATIC HYPERPLASIA
     Dosage: UNK
     Route: 048
  6. DECADRON [Concomitant]
     Active Substance: DEXAMETHASONE
     Indication: NAUSEA
     Dosage: 8 MILLIGRAM, QD
     Route: 048
     Dates: start: 20190316, end: 20190525
  7. ABRAXANE [Suspect]
     Active Substance: PACLITAXEL
     Indication: NON-SMALL CELL LUNG CANCER
     Dosage: 100 MILLIGRAM/KILOGRAM
     Route: 042
     Dates: start: 20190315, end: 20190607
  8. MYSLEE [Concomitant]
     Active Substance: ZOLPIDEM TARTRATE
     Indication: INSOMNIA
     Dosage: 1 DOSAGE FORM, QD
     Route: 048
  9. NORVASC [Concomitant]
     Active Substance: AMLODIPINE BESYLATE
     Indication: HYPERTENSION
     Dosage: 1 DOSAGE FORM, QD
     Route: 048
  10. KEYTRUDA [Suspect]
     Active Substance: PEMBROLIZUMAB
     Indication: NON-SMALL CELL LUNG CANCER
     Dosage: 200 MILLIGRAM, Q3W
     Route: 041
     Dates: start: 20190315, end: 20190522
  11. EMEND [Concomitant]
     Active Substance: APREPITANT
     Indication: NAUSEA
     Dosage: 1 DOSAGE FORM, QD
     Route: 048
     Dates: start: 20190315, end: 20190524
  12. BLADDERON [Concomitant]
     Active Substance: FLAVOXATE
     Indication: NEUROGENIC BLADDER
     Dosage: UNK
     Route: 048
  13. FLAVOXATE HYDROCHLORIDE. [Concomitant]
     Active Substance: FLAVOXATE HYDROCHLORIDE
     Indication: NEUROGENIC BLADDER
     Dosage: UNK
     Route: 048
  14. MOVIPREP [Concomitant]
     Active Substance: ASCORBIC ACID\POLYETHYLENE GLYCOL 3350\POTASSIUM CHLORIDE\SODIUM ASCORBATE\SODIUM CHLORIDE\SODIUM SULFATE
     Dosage: UNK
     Route: 048
  15. GASCON [Concomitant]
     Active Substance: DIMETHICONE
     Dosage: UNK
     Route: 048

REACTIONS (7)
  - Oedema peripheral [Not Recovered/Not Resolved]
  - Interstitial lung disease [Recovered/Resolved]
  - Decreased appetite [Recovered/Resolved]
  - Faeces soft [Recovered/Resolved]
  - Pneumocystis jirovecii pneumonia [Not Recovered/Not Resolved]
  - Neuropathy peripheral [Not Recovered/Not Resolved]
  - Hiccups [Recovered/Resolved]

NARRATIVE: CASE EVENT DATE: 20190318
